FAERS Safety Report 5537611-6 (Version None)
Quarter: 2007Q4

REPORT INFORMATION
  Report Type: 
  Country: None (occurrence: None)
  Receive Date: 20071207
  Receipt Date: 20071121
  Transmission Date: 20080405
  Serious: Yes (Hospitalization)
  Sender: FDA-Public Use
  Company Number: FR-ASTRAZENECA-2007SE06458

PATIENT
  Age: 33478 Day
  Sex: Female

DRUGS (3)
  1. COKENZEN [Suspect]
     Indication: HYPERTENSION
     Dosage: 8/12.5 MG ONCE DAILY
     Route: 048
     Dates: end: 20070910
  2. LASIX [Interacting]
     Indication: CARDIAC FAILURE
     Route: 042
     Dates: start: 20070902, end: 20070906
  3. KARDEGIC [Concomitant]
     Indication: DRUG USE FOR UNKNOWN INDICATION
     Route: 048

REACTIONS (3)
  - DRUG INTERACTION [None]
  - HYPERKALAEMIA [None]
  - RENAL FAILURE ACUTE [None]
